FAERS Safety Report 18282333 (Version 1)
Quarter: 2020Q3

REPORT INFORMATION
  Report Type: Spontaneous
  Country: US (occurrence: US)
  Receive Date: 20200918
  Receipt Date: 20200918
  Transmission Date: 20201103
  Serious: Yes (Hospitalization)
  Sender: FDA-Public Use
  Company Number: None

PATIENT
  Age: 19 Year
  Sex: Male
  Weight: 65.34 kg

DRUGS (1)
  1. LACOSAMIDE. [Suspect]
     Active Substance: LACOSAMIDE
     Indication: SEIZURE
     Route: 048
     Dates: start: 20200725

REACTIONS (5)
  - Abdominal pain [None]
  - Diarrhoea [None]
  - Nausea [None]
  - Vomiting [None]
  - Intentional product use issue [None]

NARRATIVE: CASE EVENT DATE: 20200725
